FAERS Safety Report 10388101 (Version 3)
Quarter: 2017Q2

REPORT INFORMATION
  Report Type: Report from Study
  Country: NG (occurrence: NG)
  Receive Date: 20140815
  Receipt Date: 20170426
  Transmission Date: 20170829
  Serious: Yes (Death, Hospitalization, Other)
  Sender: FDA-Public Use
  Company Number: PHHY2014NG098786

PATIENT
  Age: 42 Year
  Sex: Male

DRUGS (2)
  1. GLIVEC [Suspect]
     Active Substance: IMATINIB MESYLATE
     Dosage: 400 MG, DAILY
     Route: 048
     Dates: start: 20040330, end: 20140801
  2. GLIVEC [Suspect]
     Active Substance: IMATINIB MESYLATE
     Indication: CHRONIC MYELOID LEUKAEMIA
     Dosage: 400 MG, UNK
     Route: 048
     Dates: start: 20040322

REACTIONS (6)
  - Blast crisis in myelogenous leukaemia [Fatal]
  - Cerebral haemorrhage [Unknown]
  - Chronic myeloid leukaemia transformation [Unknown]
  - Malaise [Unknown]
  - Thrombocytopenia [Unknown]
  - Cerebrovascular accident [Fatal]

NARRATIVE: CASE EVENT DATE: 2014
